FAERS Safety Report 6371131-4 (Version None)
Quarter: 2009Q3

REPORT INFORMATION
  Report Type: 
  Country: None (occurrence: None)
  Receive Date: 20090923
  Receipt Date: 20090917
  Transmission Date: 20100115
  Serious: Yes (Hospitalization)
  Sender: FDA-Public Use
  Company Number: US-MERCK-0909USA00081

PATIENT
  Sex: Female

DRUGS (2)
  1. JANUVIA [Suspect]
     Route: 048
  2. GLYBURIDE AND METFORMIN HYDROCHLORIDE [Concomitant]
     Route: 065

REACTIONS (1)
  - BLOOD CREATININE INCREASED [None]
